FAERS Safety Report 6519429-0 (Version None)
Quarter: 2009Q4

REPORT INFORMATION
  Report Type: 
  Country: None (occurrence: None)
  Receive Date: 20091228
  Receipt Date: 20091224
  Transmission Date: 20100525
  Serious: Yes (Hospitalization)
  Sender: FDA-Public Use
  Company Number: FR-SANOFI-AVENTIS-2009SA010884

PATIENT
  Age: 61 Year
  Sex: Female

DRUGS (3)
  1. ELOXATIN [Suspect]
     Indication: BREAST CANCER
     Route: 042
     Dates: start: 20090930, end: 20090930
  2. GEMZAR [Suspect]
     Indication: BREAST CANCER
     Route: 042
     Dates: start: 20090930, end: 20090930
  3. KYTRIL [Suspect]
     Indication: PREMEDICATION
     Dosage: DOSE:3 MILLIGRAM(S)/MILLILITRE
     Route: 042
     Dates: start: 20090930, end: 20090930

REACTIONS (3)
  - DYSPHAGIA [None]
  - DYSPNOEA [None]
  - PSEUDOPARALYSIS [None]
